FAERS Safety Report 9700507 (Version 1)
Quarter: 2013Q4

REPORT INFORMATION
  Report Type: Spontaneous
  Country: FR (occurrence: None)
  Receive Date: 20131119
  Receipt Date: 20131119
  Transmission Date: 20140711
  Serious: Yes (Other)
  Sender: FDA-Public Use
  Company Number: FK201304694

PATIENT
  Sex: Male

DRUGS (3)
  1. CAFFEINE CITRATE [Suspect]
     Indication: APNOEA NEONATAL
     Dosage: STARTED DAY 2
     Dates: start: 2004, end: 2004
  2. DOXAPRAM [Suspect]
     Indication: APNOEA NEONATAL
     Dosage: STARTING DAY 18
     Dates: start: 2004, end: 2004
  3. FUROSEMIDE (FUROSEMIDE) [Concomitant]

REACTIONS (2)
  - Hypokalaemia [None]
  - Weight increased [None]
